FAERS Safety Report 6119261-6 (Version None)
Quarter: 2009Q1

REPORT INFORMATION
  Report Type: 
  Country: None (occurrence: None)
  Receive Date: 20090316
  Receipt Date: 20090308
  Transmission Date: 20090719
  Serious: Yes (Other)
  Sender: FDA-Public Use
  Company Number: US-ROCHE-621179

PATIENT
  Sex: Male

DRUGS (2)
  1. LARIAM [Suspect]
     Indication: MALARIA PROPHYLAXIS
     Dosage: FORM: PILL
     Route: 065
  2. MEFLOQUINE HYDROCHLORIDE [Suspect]
     Indication: MALARIA PROPHYLAXIS
     Dosage: FORM: PILL
     Route: 065
     Dates: start: 20020101

REACTIONS (5)
  - AGGRESSION [None]
  - ANGER [None]
  - DISORIENTATION [None]
  - HALLUCINATION [None]
  - VESTIBULAR DISORDER [None]
